FAERS Safety Report 16885083 (Version 1)
Quarter: 2019Q4

REPORT INFORMATION
  Report Type: Spontaneous
  Country: US (occurrence: US)
  Receive Date: 20190809
  Receipt Date: 20190809
  Transmission Date: 20200122
  Serious: Yes (Other)
  Sender: FDA-Public Use
  Company Number: None

PATIENT
  Age: 63 Year
  Sex: Female
  Weight: 58.51 kg

DRUGS (16)
  1. LOSARTAN. [Concomitant]
     Active Substance: LOSARTAN
  2. PROLIA [Concomitant]
     Active Substance: DENOSUMAB
  3. ASPIRIN. [Concomitant]
     Active Substance: ASPIRIN
  4. OMEGA 3 OIL [Concomitant]
  5. FARXIGA [Concomitant]
     Active Substance: DAPAGLIFLOZIN PROPANEDIOL
  6. ROSUVASTIN [Concomitant]
     Active Substance: ROSUVASTATIN
  7. VASCEPA [Concomitant]
     Active Substance: ICOSAPENT ETHYL
  8. CALCIUM [Concomitant]
     Active Substance: CALCIUM
  9. TRULICITY [Suspect]
     Active Substance: DULAGLUTIDE
     Indication: TYPE 2 DIABETES MELLITUS
     Dosage: ?          OTHER STRENGTH:ONE PEN;QUANTITY:1;OTHER ROUTE:INJECTION?
     Dates: start: 20180101, end: 20180505
  10. LETROZOLE. [Concomitant]
     Active Substance: LETROZOLE
  11. LOVAZA [Concomitant]
     Active Substance: OMEGA-3-ACID ETHYL ESTERS
  12. VITAMIN B COMPLEX [Concomitant]
     Active Substance: CYANOCOBALAMIN\DEXPANTHENOL\NIACINAMIDE\PYRIDOXINE HYDROCHLORIDE\RIBOFLAVIN 5^-PHOSPHATE SODIUM\THIAMINE HYDROCHLORIDE\VITAMIN B COMPLEX
  13. METFORMIN [Concomitant]
     Active Substance: METFORMIN HYDROCHLORIDE
  14. GLIPIZIDE. [Concomitant]
     Active Substance: GLIPIZIDE
  15. AMLODIPINE [Concomitant]
     Active Substance: AMLODIPINE BESYLATE
  16. JANUVIA [Concomitant]
     Active Substance: SITAGLIPTIN PHOSPHATE

REACTIONS (3)
  - Depressed mood [None]
  - Gallbladder disorder [None]
  - Biliary colic [None]

NARRATIVE: CASE EVENT DATE: 20181102
